FAERS Safety Report 20781095 (Version 1)
Quarter: 2022Q2

REPORT INFORMATION
  Report Type: Report from Study
  Country: US (occurrence: US)
  Receive Date: 20220504
  Receipt Date: 20220504
  Transmission Date: 20220721
  Serious: Yes (Other)
  Sender: FDA-Public Use
  Company Number: US-AMRYT PHARMACEUTICALS DAC-AEGR005858

PATIENT
  Sex: Female

DRUGS (2)
  1. OCTREOTIDE [Suspect]
     Active Substance: OCTREOTIDE
     Indication: Acromegaly
     Dosage: 20 MILLIGRAM, QID
     Route: 048
     Dates: start: 202103
  2. OCTREOTIDE [Suspect]
     Active Substance: OCTREOTIDE
     Dosage: 20 MILLIGRAM, QID
     Route: 048

REACTIONS (3)
  - Abortion spontaneous [Unknown]
  - Therapy interrupted [Recovered/Resolved]
  - Maternal exposure during pregnancy [Unknown]
